FAERS Safety Report 12299333 (Version 1)
Quarter: 2016Q2

REPORT INFORMATION
  Report Type: Spontaneous
  Country: US (occurrence: None)
  Receive Date: 20160422
  Receipt Date: 20160422
  Transmission Date: 20160815
  Serious: Yes (Disabling, Other)
  Sender: FDA-Public Use
  Company Number: None

PATIENT
  Age: 47 Year
  Sex: Female
  Weight: 54.43 kg

DRUGS (11)
  1. ZYRTEC [Concomitant]
     Active Substance: CETIRIZINE HYDROCHLORIDE
  2. CELEXA [Concomitant]
     Active Substance: CITALOPRAM HYDROBROMIDE
  3. IRON PILLS [Concomitant]
     Active Substance: IRON
  4. IBUPROFEN. [Concomitant]
     Active Substance: IBUPROFEN
  5. VITAMINS [Concomitant]
     Active Substance: VITAMINS
  6. MASELE NEVUS, 1 ML [Suspect]
     Active Substance: SALICYLIC ACID
     Indication: MOLE EXCISION
     Dosage: 1 DROP (S) AS NEEDED APPLIED TO A SURFACE, USUALLY THE SKIN
     Dates: start: 20160416, end: 20160416
  7. MAGNESIUM [Concomitant]
     Active Substance: MAGNESIUM
  8. BIOTIN [Concomitant]
     Active Substance: BIOTIN
  9. VITAMIN C [Concomitant]
     Active Substance: ASCORBIC ACID
  10. VITAMIN B12 [Concomitant]
     Active Substance: CYANOCOBALAMIN
  11. FOLIC ACID. [Concomitant]
     Active Substance: FOLIC ACID

REACTIONS (5)
  - Burns second degree [None]
  - Product container seal issue [None]
  - Application site pain [None]
  - Burns third degree [None]
  - Application site reaction [None]

NARRATIVE: CASE EVENT DATE: 20160416
